FAERS Safety Report 5761635-7 (Version None)
Quarter: 2008Q2

REPORT INFORMATION
  Report Type: 
  Country: None (occurrence: None)
  Receive Date: 20080606
  Receipt Date: 20080527
  Transmission Date: 20081010
  Serious: Yes (Hospitalization, Other)
  Sender: FDA-Public Use
  Company Number: US-PFIZER INC-2007098445

PATIENT
  Sex: Male
  Weight: 79.4 kg

DRUGS (3)
  1. BEXTRA [Suspect]
     Indication: MUSCULOSKELETAL PAIN
  2. BEXTRA [Suspect]
     Indication: BACK PAIN
  3. VIOXX [Suspect]
     Dates: start: 20030410

REACTIONS (5)
  - ABDOMINAL PAIN UPPER [None]
  - CEREBROVASCULAR ACCIDENT [None]
  - DEPRESSION [None]
  - NAUSEA [None]
  - PANIC ATTACK [None]
